FAERS Safety Report 5812737-8 (Version None)
Quarter: 2008Q3

REPORT INFORMATION
  Report Type: 
  Country: None (occurrence: None)
  Receive Date: 20080714
  Receipt Date: 20080714
  Transmission Date: 20090109
  Serious: Yes (Life-Threatening, Hospitalization)
  Sender: FDA-Public Use
  Company Number: None

PATIENT
  Sex: Male
  Weight: 115.6672 kg

DRUGS (3)
  1. DIGITEK  .125 MG ORALTABS UDL LABORATORIES/ACTAVI [Suspect]
     Indication: CARDIAC FAILURE CONGESTIVE
     Dosage: 1 TABLET 3 X PER DAY PO
     Route: 048
     Dates: start: 20000420, end: 20080626
  2. DIGITEK  .125 MG ORALTABS UDL LABORATORIES/ACTAVI [Suspect]
     Indication: POST PROCEDURAL COMPLICATION
     Dosage: 1 TABLET 3 X PER DAY PO
     Route: 048
     Dates: start: 20000420, end: 20080626
  3. DIGITEK  .125 MG ORALTABS UDL LABORATORIES/ACTAVI [Suspect]
     Indication: VASCULAR GRAFT
     Dosage: 1 TABLET 3 X PER DAY PO
     Route: 048
     Dates: start: 20000420, end: 20080626

REACTIONS (6)
  - ACTIVITIES OF DAILY LIVING IMPAIRED [None]
  - CARDIAC FAILURE CONGESTIVE [None]
  - HEART RATE IRREGULAR [None]
  - HYPOTENSION [None]
  - THERAPEUTIC AGENT TOXICITY [None]
  - VISUAL IMPAIRMENT [None]
